FAERS Safety Report 9115537 (Version 1)
Quarter: 2013Q1

REPORT INFORMATION
  Report Type: Spontaneous
  Country: DK (occurrence: None)
  Receive Date: 20130129
  Receipt Date: 20130129
  Transmission Date: 20140127
  Serious: Yes (Death, Life-Threatening)
  Sender: FDA-Public Use
  Company Number: 2013MA000639

PATIENT
  Age: 61 Year
  Sex: Male

DRUGS (1)
  1. METFORMIN HYDROCHLORIDE EXTENDED-RELEASE TABL ETS [Suspect]
     Indication: DIABETES MELLITUS

REACTIONS (4)
  - Lactic acidosis [None]
  - Sepsis [None]
  - Haemodialysis [None]
  - Multi-organ failure [None]
